FAERS Safety Report 23278690 (Version 5)
Quarter: 2024Q2

REPORT INFORMATION
  Report Type: Report from Study
  Country: US (occurrence: US)
  Receive Date: 20231208
  Receipt Date: 20240612
  Transmission Date: 20240717
  Serious: Yes (Hospitalization, Other)
  Sender: FDA-Public Use
  Company Number: US-SANDOZ-SDZ2023US061468

PATIENT
  Sex: Female
  Weight: 83.9 kg

DRUGS (8)
  1. TREPROSTINIL [Suspect]
     Active Substance: TREPROSTINIL
     Dosage: 24.8 NG/KG/ MI N, CONT
     Route: 042
     Dates: start: 20231129
  2. TREPROSTINIL [Suspect]
     Active Substance: TREPROSTINIL
     Dosage: 30 NG/KG/ MI N, CONT
     Route: 042
     Dates: start: 20231129
  3. TREPROSTINIL [Suspect]
     Active Substance: TREPROSTINIL
     Dosage: 9.6 NG/KG/ MIN; CONT
     Route: 042
     Dates: start: 20231129
  4. TREPROSTINIL [Suspect]
     Active Substance: TREPROSTINIL
     Indication: Pulmonary arterial hypertension
     Dosage: 1 MG/ML, CONT
     Route: 042
  5. ELIQUIS [Concomitant]
     Active Substance: APIXABAN
     Indication: Product used for unknown indication
     Dosage: UNK
     Route: 065
  6. OFEV [Concomitant]
     Active Substance: NINTEDANIB
     Indication: Product used for unknown indication
     Route: 065
  7. OPSUMIT [Concomitant]
     Active Substance: MACITENTAN
     Indication: Product used for unknown indication
     Route: 065
  8. SILDENAFIL CITRATE [Concomitant]
     Active Substance: SILDENAFIL CITRATE
     Indication: Product used for unknown indication
     Route: 065

REACTIONS (8)
  - Hospitalisation [Unknown]
  - Pain [Unknown]
  - Weight increased [Unknown]
  - Abdominal discomfort [Unknown]
  - Headache [Unknown]
  - Arthralgia [Unknown]
  - Diarrhoea [Unknown]
  - Nausea [Unknown]
